FAERS Safety Report 4369061-2 (Version None)
Quarter: 2004Q2

REPORT INFORMATION
  Report Type: 
  Country: None (occurrence: None)
  Receive Date: 20040527
  Receipt Date: 20040518
  Transmission Date: 20050107
  Serious: Yes (Disabling, Other)
  Sender: FDA-Public Use
  Company Number: US-JNJFOC-20040504175

PATIENT
  Age: 39 Year
  Sex: Female
  Weight: 53.5244 kg

DRUGS (2)
  1. TOPAMAX [Suspect]
     Indication: EPILEPSY
     Dosage: IN 1 DAY, ORAL
     Route: 048
     Dates: start: 20030701
  2. PHENOBARBITAL TAB [Concomitant]

REACTIONS (5)
  - BALANCE DISORDER [None]
  - BLINDNESS UNILATERAL [None]
  - EYE PAIN [None]
  - GAZE PALSY [None]
  - MACULAR DEGENERATION [None]
